FAERS Safety Report 24104275 (Version 1)
Quarter: 2024Q3

REPORT INFORMATION
  Report Type: Spontaneous
  Country: US (occurrence: US)
  Receive Date: 20240717
  Receipt Date: 20240717
  Transmission Date: 20241016
  Serious: Yes (Hospitalization)
  Sender: DR REDDYS
  Company Number: US-DRL-USA-LIT/USA/24/0010503

PATIENT
  Age: 14 Year
  Sex: Female

DRUGS (1)
  1. ACYCLOVIR [Suspect]
     Active Substance: ACYCLOVIR
     Indication: Genital herpes
     Dosage: ORAL ACYCLOVIR 400 MG THREE TIMES DAILY FOR FIVE DAYS
     Route: 048

REACTIONS (4)
  - Epstein-Barr virus infection [Recovered/Resolved]
  - Vulvovaginal ulceration [Recovered/Resolved]
  - Herpes simplex [Recovered/Resolved]
  - Treatment failure [Recovered/Resolved]
